FAERS Safety Report 5945830-X (Version None)
Quarter: 2008Q4

REPORT INFORMATION
  Report Type: 
  Country: None (occurrence: None)
  Receive Date: 20081108
  Receipt Date: 20081028
  Transmission Date: 20090506
  Serious: Yes (Other)
  Sender: FDA-Public Use
  Company Number: GB-BAUSCH-2008BL004576

PATIENT
  Age: 63 Year
  Sex: Female

DRUGS (11)
  1. DEXAMETHASONE [Suspect]
     Indication: DRUG USE FOR UNKNOWN INDICATION
     Route: 065
  2. BORTEZOMIB [Suspect]
     Indication: MYELOMA RECURRENCE
     Route: 042
     Dates: start: 20080512
  3. BORTEZOMIB [Suspect]
     Route: 042
     Dates: start: 20080512
  4. BORTEZOMIB [Suspect]
     Route: 042
     Dates: start: 20080512
  5. BORTEZOMIB [Suspect]
     Route: 042
     Dates: start: 20080512
  6. BORTEZOMIB [Suspect]
     Route: 042
     Dates: start: 20080512
  7. ONDANSETRON [Suspect]
     Indication: DRUG USE FOR UNKNOWN INDICATION
     Route: 048
  8. ACYCLOVIR [Concomitant]
     Indication: PROPHYLAXIS
     Route: 048
  9. FOLIC ACID [Concomitant]
     Indication: BLOOD DISORDER
     Route: 048
  10. METOCLOPRAMIDE [Concomitant]
     Indication: NAUSEA
     Route: 048
  11. MORPHINE SULFATE INJ [Concomitant]
     Indication: PAIN
     Route: 048

REACTIONS (1)
  - LIVER FUNCTION TEST ABNORMAL [None]
